FAERS Safety Report 22661723 (Version 1)
Quarter: 2023Q2

REPORT INFORMATION
  Report Type: Spontaneous
  Country: IN (occurrence: IN)
  Receive Date: 20230630
  Receipt Date: 20230630
  Transmission Date: 20230721
  Serious: Yes (Other)
  Sender: FDA-Public Use
  Company Number: IN-PFIZER INC-202200463885

PATIENT
  Age: 64 Year
  Sex: Male

DRUGS (7)
  1. DACOMITINIB [Suspect]
     Active Substance: DACOMITINIB
     Indication: Lung adenocarcinoma
     Dosage: 45 MG, 1X/DAY
     Route: 048
     Dates: start: 20220322
  2. DACOMITINIB [Suspect]
     Active Substance: DACOMITINIB
     Dosage: 45 MG, 1X/DAY
     Route: 048
     Dates: start: 20230117
  3. DACOMITINIB [Suspect]
     Active Substance: DACOMITINIB
     Dosage: 45 MG, 1X/DAY
     Route: 048
     Dates: start: 20230216
  4. METOPROLOL [Concomitant]
     Active Substance: METOPROLOL
     Dosage: 25 MG, DAILY
  5. FAMOTIDINE [Concomitant]
     Active Substance: FAMOTIDINE
     Dosage: 40 MG
  6. UPRISE D3 [Concomitant]
     Dosage: 60,000 UNITS ONCE A WEEK ON EMPTY STOMACH
  7. UNIAZ [Concomitant]
     Indication: Lung adenocarcinoma
     Dosage: UNK

REACTIONS (13)
  - Haemorrhage intracranial [Unknown]
  - Intracranial mass [Unknown]
  - Rash [Recovered/Resolved]
  - Dysphonia [Recovering/Resolving]
  - Vocal cord inflammation [Recovering/Resolving]
  - Blood pressure increased [Recovered/Resolved]
  - Paronychia [Unknown]
  - Neoplasm progression [Unknown]
  - Asthenia [Unknown]
  - Gastrointestinal motility disorder [Unknown]
  - Pyrexia [Unknown]
  - Decreased appetite [Unknown]
  - Cough [Unknown]

NARRATIVE: CASE EVENT DATE: 20230325
